FAERS Safety Report 19765336 (Version 1)
Quarter: 2021Q3

REPORT INFORMATION
  Report Type: Spontaneous
  Country: AT (occurrence: AT)
  Receive Date: 20210830
  Receipt Date: 20210830
  Transmission Date: 20211014
  Serious: Yes (Other)
  Sender: FDA-Public Use
  Company Number: AT-PFIZER INC-202101062328

PATIENT
  Age: 36 Year
  Sex: Male

DRUGS (1)
  1. LORLATINIB [Suspect]
     Active Substance: LORLATINIB

REACTIONS (7)
  - Blood triglycerides increased [Unknown]
  - Abdominal pain [Unknown]
  - Lipase increased [Unknown]
  - Pyrexia [Unknown]
  - Blood cholesterol increased [Unknown]
  - Amylase increased [Unknown]
  - Pancreatitis acute [Unknown]
